FAERS Safety Report 19940806 (Version 1)
Quarter: 2021Q4

REPORT INFORMATION
  Report Type: Spontaneous
  Country: CA (occurrence: CA)
  Receive Date: 20211011
  Receipt Date: 20211011
  Transmission Date: 20220303
  Serious: Yes (Other)
  Sender: FDA-Public Use
  Company Number: CA-PHARMGEN-2021PGLIT00005

PATIENT
  Age: 52 Year

DRUGS (2)
  1. BETAMETHASONE DIPROPIONATE [Suspect]
     Active Substance: BETAMETHASONE DIPROPIONATE
     Indication: Product used for unknown indication
  2. TACROLIMUS [Suspect]
     Active Substance: TACROLIMUS
     Indication: Product used for unknown indication

REACTIONS (8)
  - Cutaneous T-cell lymphoma [Recovering/Resolving]
  - Castleman^s disease [Recovering/Resolving]
  - Cutaneous lymphoma [Recovering/Resolving]
  - Dermatitis exfoliative generalised [Recovering/Resolving]
  - Muscle atrophy [Recovering/Resolving]
  - Lichen planus [Recovering/Resolving]
  - Neurodermatitis [Recovering/Resolving]
  - Dermatitis contact [Recovering/Resolving]
